FAERS Safety Report 8894612 (Version 1)
Quarter: 2012Q4

REPORT INFORMATION
  Report Type: 
  Country: JP (occurrence: JP)
  Receive Date: 20121108
  Receipt Date: 20121108
  Transmission Date: 20130627
  Serious: Yes (Hospitalization)
  Sender: FDA-Public Use
  Company Number: JP-ASTELLAS-2012JP010517

PATIENT
  Age: 89 Year
  Sex: Female

DRUGS (3)
  1. VESICARE [Suspect]
     Dosage: 5 mg, UID/QD
     Route: 048
  2. VESICARE [Suspect]
     Dosage: 2.5 mg, UID/QD
     Route: 048
     Dates: start: 20120905, end: 2012
  3. VESICARE [Suspect]
     Dosage: 1.25 mg, Unknown/D
     Route: 048
     Dates: start: 2012

REACTIONS (3)
  - Intentional drug misuse [Unknown]
  - Pyelonephritis [Unknown]
  - Micturition disorder [Unknown]
